FAERS Safety Report 5947459-6 (Version None)
Quarter: 2008Q4

REPORT INFORMATION
  Report Type: 
  Country: None (occurrence: None)
  Receive Date: 20081110
  Receipt Date: 20081029
  Transmission Date: 20090506
  Serious: Yes (Hospitalization)
  Sender: FDA-Public Use
  Company Number: CN-PFIZER INC-2008074022

PATIENT
  Age: 5 Year
  Sex: Male
  Weight: 20 kg

DRUGS (1)
  1. CLINDAMYCIN PHOSPHATE [Suspect]
     Dosage: DAILY DOSE:.5GRAM
     Route: 042

REACTIONS (1)
  - PARALYSIS FLACCID [None]
